FAERS Safety Report 15757955 (Version 3)
Quarter: 2022Q1

REPORT INFORMATION
  Report Type: Spontaneous
  Country: GB (occurrence: GB)
  Receive Date: 20181225
  Receipt Date: 20220131
  Transmission Date: 20220423
  Serious: Yes (Congenital Anomaly)
  Sender: FDA-Public Use
  Company Number: None

PATIENT

DRUGS (2)
  1. ONDANSETRON [Suspect]
     Active Substance: ONDANSETRON
     Indication: Hyperemesis gravidarum
     Route: 064
     Dates: start: 20170902
  2. CYCLIZINE [Suspect]
     Active Substance: CYCLIZINE
     Indication: Hyperemesis gravidarum
     Route: 064
     Dates: start: 20170902

REACTIONS (3)
  - Congenital hand malformation [Unknown]
  - Foetal exposure during pregnancy [Unknown]
  - Amniotic band syndrome [Unknown]
